FAERS Safety Report 20761891 (Version 5)
Quarter: 2023Q2

REPORT INFORMATION
  Report Type: Spontaneous
  Country: JP (occurrence: JP)
  Receive Date: 20220428
  Receipt Date: 20230519
  Transmission Date: 20230721
  Serious: Yes (Hospitalization, Other)
  Sender: FDA-Public Use
  Company Number: JP-ASTELLAS-2022JP006112

PATIENT
  Age: 56 Year
  Sex: Female

DRUGS (36)
  1. XOSPATA [Suspect]
     Active Substance: GILTERITINIB
     Indication: Acute myeloid leukaemia recurrent
     Route: 048
     Dates: start: 20220228, end: 20220323
  2. XOSPATA [Suspect]
     Active Substance: GILTERITINIB
     Indication: Acute myeloid leukaemia refractory
  3. LINEZOLID [Suspect]
     Active Substance: LINEZOLID
     Indication: Product used for unknown indication
     Dosage: UNK UNK, UNKNOWN FREQ.
     Route: 065
  4. MITOXANTRONE [Suspect]
     Active Substance: MITOXANTRONE HYDROCHLORIDE
     Indication: Acute myeloid leukaemia
     Route: 041
     Dates: start: 20220221, end: 20220223
  5. ETOPOSIDE [Suspect]
     Active Substance: ETOPOSIDE
     Indication: Acute myeloid leukaemia
     Route: 041
     Dates: start: 20220221, end: 20220225
  6. CYTARABINE [Suspect]
     Active Substance: CYTARABINE
     Indication: Acute myeloid leukaemia
     Route: 041
     Dates: start: 20220221, end: 20220227
  7. LAMICTAL [Suspect]
     Active Substance: LAMOTRIGINE
     Indication: Bipolar disorder
     Route: 048
     Dates: start: 20220223, end: 20220228
  8. LAMICTAL [Suspect]
     Active Substance: LAMOTRIGINE
     Route: 048
     Dates: start: 20220301, end: 20220306
  9. LAMICTAL [Suspect]
     Active Substance: LAMOTRIGINE
     Route: 048
     Dates: start: 20220307, end: 20220310
  10. MEROPENEM [Suspect]
     Active Substance: MEROPENEM
     Indication: Febrile neutropenia
     Route: 041
     Dates: start: 20220224, end: 20220311
  11. VANCOMYCIN [Suspect]
     Active Substance: VANCOMYCIN
     Indication: Febrile neutropenia
     Route: 041
     Dates: start: 20220226, end: 20220307
  12. VANCOMYCIN [Suspect]
     Active Substance: VANCOMYCIN
     Route: 041
     Dates: start: 20220308, end: 20220311
  13. MICAFUNGIN SODIUM [Suspect]
     Active Substance: MICAFUNGIN SODIUM
     Indication: Febrile neutropenia
     Route: 041
     Dates: start: 20220307, end: 20220315
  14. DORIPENEM MONOHYDRATE [Suspect]
     Active Substance: DORIPENEM MONOHYDRATE
     Indication: Febrile neutropenia
     Route: 041
     Dates: start: 20220311, end: 20220323
  15. ACETAMINOPHEN [Suspect]
     Active Substance: ACETAMINOPHEN
     Indication: Pyrexia
     Route: 041
     Dates: start: 20220311
  16. CUBICIN [Suspect]
     Active Substance: DAPTOMYCIN
     Indication: Febrile neutropenia
     Route: 041
     Dates: start: 20220312, end: 20220324
  17. AMBISOME [Suspect]
     Active Substance: AMPHOTERICIN B
     Indication: Febrile neutropenia
     Route: 041
     Dates: start: 20220315, end: 20220323
  18. ZOSYN [Suspect]
     Active Substance: PIPERACILLIN SODIUM\TAZOBACTAM SODIUM
     Indication: Febrile neutropenia
     Route: 041
     Dates: start: 20220323
  19. ABILIFY [Concomitant]
     Active Substance: ARIPIPRAZOLE
     Indication: Bipolar disorder
     Route: 048
     Dates: start: 20180627
  20. AKINETON [Concomitant]
     Active Substance: BIPERIDEN HYDROCHLORIDE
     Indication: Bipolar disorder
     Route: 048
     Dates: start: 20180627
  21. FLUCONAZOLE [Concomitant]
     Active Substance: FLUCONAZOLE
     Indication: Antibiotic prophylaxis
     Route: 048
     Dates: start: 20220114, end: 20220307
  22. SULFAMETHOXAZOLE\TRIMETHOPRIM [Concomitant]
     Active Substance: SULFAMETHOXAZOLE\TRIMETHOPRIM
     Indication: Antibiotic prophylaxis
     Dosage: 1 TABLET, ONCE DAILY
     Route: 048
     Dates: start: 20220114
  23. MIYA-BM [Concomitant]
     Active Substance: CLOSTRIDIUM BUTYRICUM SPORES STRAIN M-55
     Indication: Dysbiosis
     Dosage: 1 TABLET, THRICE DAILY
     Route: 048
     Dates: start: 20220117
  24. BROTIZOLAM [Concomitant]
     Active Substance: BROTIZOLAM
     Indication: Insomnia
     Dosage: 0.25 MG, ONCE DAILY
     Route: 048
     Dates: start: 20220121
  25. VONOPRAZAN FUMARATE [Concomitant]
     Active Substance: VONOPRAZAN FUMARATE
     Indication: Gastrooesophageal reflux disease
     Route: 048
     Dates: start: 20220125
  26. URSODIOL [Concomitant]
     Active Substance: URSODIOL
     Indication: Cholestasis
     Route: 048
     Dates: start: 20220126
  27. ZOVIRAX [Concomitant]
     Active Substance: ACYCLOVIR
     Indication: Oral herpes
     Route: 048
     Dates: start: 20220214
  28. KENKETU GLOVENIN-I [Concomitant]
     Active Substance: HUMAN IMMUNOGLOBULIN G
     Indication: Hypogammaglobulinaemia
     Route: 041
     Dates: start: 20220308, end: 20220309
  29. NEO-MINOPHAGEN C [Concomitant]
     Active Substance: AMMONIUM GLYCYRRHIZATE
     Indication: Liver disorder
     Route: 042
     Dates: start: 20220312, end: 20220325
  30. BETAMETHASONE DIPROPIONATE [Concomitant]
     Active Substance: BETAMETHASONE DIPROPIONATE
     Indication: Rash
     Dosage: UNK UNK, UNKNOWN FREQ.
     Route: 050
     Dates: start: 20220314
  31. LOCOID [Concomitant]
     Active Substance: HYDROCORTISONE BUTYRATE
     Indication: Rash
     Dosage: UNK UNK, UNKNOWN FREQ.
     Route: 050
     Dates: start: 20220314
  32. FLUFENAMIC ACID [Concomitant]
     Active Substance: FLUFENAMIC ACID
     Indication: Rash
     Dosage: UNK UNK, UNKNOWN FREQ.
     Route: 050
     Dates: start: 20220314
  33. ALBUMIN HUMAN [Concomitant]
     Active Substance: ALBUMIN HUMAN
     Indication: Hypoalbuminaemia
     Route: 041
     Dates: start: 20220315
  34. LASIX [Concomitant]
     Active Substance: FUROSEMIDE
     Indication: Oedema due to renal disease
     Route: 042
     Dates: start: 20220320
  35. FILGRASTIM [Concomitant]
     Active Substance: FILGRASTIM
     Indication: Product used for unknown indication
     Dosage: UNK UNK, UNKNOWN FREQ.
     Route: 065
     Dates: start: 20220324, end: 20220410
  36. PREDNISOLONE [Concomitant]
     Active Substance: PREDNISOLONE
     Indication: Drug eruption
     Route: 065
     Dates: start: 20220404

REACTIONS (8)
  - Cerebellar infarction [Recovered/Resolved]
  - Febrile neutropenia [Recovered/Resolved]
  - Electrocardiogram QT prolonged [Recovered/Resolved]
  - Neutrophil count decreased [Recovered/Resolved]
  - Platelet count decreased [Recovered/Resolved]
  - Rash [Recovering/Resolving]
  - Blood bilirubin increased [Recovered/Resolved]
  - Drug eruption [Recovering/Resolving]

NARRATIVE: CASE EVENT DATE: 20220224
